FAERS Safety Report 15394628 (Version 1)
Quarter: 2018Q4

REPORT INFORMATION
  Report Type: Spontaneous
  Country: FR (occurrence: FR)
  Receive Date: 20180918
  Receipt Date: 20180918
  Transmission Date: 20190204
  Serious: Yes (Other)
  Sender: FDA-Public Use
  Company Number: FR-TEVA-2018-FR-955486

PATIENT
  Age: 86 Year
  Sex: Male
  Weight: 55.75 kg

DRUGS (3)
  1. CHLORHYDRATE D^AMIODARONE [Suspect]
     Active Substance: AMIODARONE
     Indication: ATRIAL FIBRILLATION
     Dosage: 400 MILLIGRAM DAILY;
     Route: 048
     Dates: start: 2015, end: 20180809
  2. SERESTA 10 MG, TABLET [Suspect]
     Active Substance: OXAZEPAM
     Indication: ANXIETY
     Dosage: 10 MILLIGRAM DAILY; 10 MG 1 TIMES A DAY IF ANXIETY
     Route: 048
     Dates: start: 20180220, end: 20180810
  3. PARACETAMOL [Suspect]
     Active Substance: ACETAMINOPHEN
     Indication: PAIN
     Dosage: 3 GRAM DAILY;
     Route: 048
     Dates: start: 20180319, end: 20180808

REACTIONS (1)
  - Hepatocellular injury [Recovering/Resolving]

NARRATIVE: CASE EVENT DATE: 20180808
